FAERS Safety Report 18333684 (Version 2)
Quarter: 2020Q4

REPORT INFORMATION
  Report Type: Spontaneous
  Country: US (occurrence: US)
  Receive Date: 20201001
  Receipt Date: 20201009
  Transmission Date: 20210113
  Serious: Yes (Hospitalization, Other)
  Sender: FDA-Public Use
  Company Number: US-ASTRAZENECA-2020SF25322

PATIENT
  Age: 14300 Day
  Sex: Male
  Weight: 147.1 kg

DRUGS (45)
  1. ZOLPIDEM [Concomitant]
     Active Substance: ZOLPIDEM TARTRATE
     Dates: start: 20170109
  2. MELOXICAM. [Concomitant]
     Active Substance: MELOXICAM
  3. PROAIR HFA [Concomitant]
     Active Substance: ALBUTEROL SULFATE
     Dates: start: 20160907
  4. FLUTICASONE. [Concomitant]
     Active Substance: FLUTICASONE
  5. HYDROMORPHONE [Concomitant]
     Active Substance: HYDROMORPHONE
  6. MORPHINE [Concomitant]
     Active Substance: MORPHINE
  7. XIGDUO XR [Suspect]
     Active Substance: DAPAGLIFLOZIN PROPANEDIOL\METFORMIN HYDROCHLORIDE
     Indication: BLOOD PRESSURE DECREASED
     Route: 048
     Dates: start: 201610, end: 20170427
  8. XIGDUO XR [Suspect]
     Active Substance: DAPAGLIFLOZIN PROPANEDIOL\METFORMIN HYDROCHLORIDE
     Indication: TYPE 2 DIABETES MELLITUS
     Dosage: 50-1000 MG DAILY
     Route: 048
     Dates: start: 20170427
  9. OMEPRAZOLE. [Concomitant]
     Active Substance: OMEPRAZOLE
     Dates: start: 20160819
  10. METFORMIN [Concomitant]
     Active Substance: METFORMIN HYDROCHLORIDE
     Dates: start: 20160819
  11. FLUCONAZOLE. [Concomitant]
     Active Substance: FLUCONAZOLE
     Dates: start: 20170111
  12. ADVAIR HFA [Concomitant]
     Active Substance: FLUTICASONE PROPIONATE\SALMETEROL XINAFOATE
  13. RIZATRIPTAN. [Concomitant]
     Active Substance: RIZATRIPTAN
  14. HUMALOG [Concomitant]
     Active Substance: INSULIN LISPRO
  15. XIGDUO XR [Suspect]
     Active Substance: DAPAGLIFLOZIN PROPANEDIOL\METFORMIN HYDROCHLORIDE
     Indication: WEIGHT DECREASED
     Route: 048
     Dates: start: 201610, end: 20170427
  16. TRADJENTA [Concomitant]
     Active Substance: LINAGLIPTIN
     Dates: start: 20160824
  17. TRAMADOL. [Concomitant]
     Active Substance: TRAMADOL
     Dates: start: 20170105
  18. AZITHROMYCIN ANHYDROUS. [Concomitant]
     Active Substance: AZITHROMYCIN ANHYDROUS
  19. LIDOCAINE. [Concomitant]
     Active Substance: LIDOCAINE
     Dates: start: 20170427
  20. ESCITALOPRAM [Concomitant]
     Active Substance: ESCITALOPRAM OXALATE
     Dates: start: 20170815
  21. NICOTINE. [Concomitant]
     Active Substance: NICOTINE
  22. CEPHALEXIN. [Concomitant]
     Active Substance: CEPHALEXIN
  23. XIGDUO XR [Suspect]
     Active Substance: DAPAGLIFLOZIN PROPANEDIOL\METFORMIN HYDROCHLORIDE
     Indication: TYPE 2 DIABETES MELLITUS
     Route: 048
     Dates: start: 201610, end: 20170427
  24. XIGDUO XR [Suspect]
     Active Substance: DAPAGLIFLOZIN PROPANEDIOL\METFORMIN HYDROCHLORIDE
     Indication: WEIGHT DECREASED
     Dosage: 50-1000 MG DAILY
     Route: 048
     Dates: start: 20170427
  25. XIGDUO XR [Suspect]
     Active Substance: DAPAGLIFLOZIN PROPANEDIOL\METFORMIN HYDROCHLORIDE
     Indication: BLOOD PRESSURE DECREASED
     Dosage: 50-1000 MG DAILY
     Route: 048
     Dates: start: 20170427
  26. GABAPENTIN. [Concomitant]
     Active Substance: GABAPENTIN
     Dates: start: 20160824
  27. LISINOPRIL. [Concomitant]
     Active Substance: LISINOPRIL
     Dates: start: 20170605
  28. OXYCODONE [Concomitant]
     Active Substance: OXYCODONE
     Dates: start: 20170525
  29. CLINDAMYCIN. [Concomitant]
     Active Substance: CLINDAMYCIN
  30. DAPTOMYCIN. [Concomitant]
     Active Substance: DAPTOMYCIN
  31. AMOXICILLIN. [Concomitant]
     Active Substance: AMOXICILLIN
     Dates: start: 20160907
  32. NYSTOP [Concomitant]
     Active Substance: NYSTATIN
     Dates: start: 20170116
  33. MUPIROCIN. [Concomitant]
     Active Substance: MUPIROCIN
     Dates: start: 20170608
  34. KETOCONAZOLE. [Concomitant]
     Active Substance: KETOCONAZOLE
  35. LOVENOX [Concomitant]
     Active Substance: ENOXAPARIN SODIUM
  36. SODIUM CHLORIDE. [Concomitant]
     Active Substance: SODIUM CHLORIDE
  37. JANUMET [Concomitant]
     Active Substance: METFORMIN HYDROCHLORIDE\SITAGLIPTIN PHOSPHATE
     Dates: start: 20161214
  38. BYDUREON [Concomitant]
     Active Substance: EXENATIDE
     Dates: start: 20170428
  39. SKLICE [Concomitant]
     Active Substance: IVERMECTIN
     Dates: start: 20170927
  40. GUAIFENESIN. [Concomitant]
     Active Substance: GUAIFENESIN
  41. CARAFATE [Concomitant]
     Active Substance: SUCRALFATE
     Dates: start: 20170109
  42. CETRIZINE [Concomitant]
     Active Substance: CETIRIZINE HYDROCHLORIDE
  43. PROPANOLOL [Concomitant]
     Active Substance: PROPRANOLOL HYDROCHLORIDE
  44. SUMATRIPTAN. [Concomitant]
     Active Substance: SUMATRIPTAN
  45. VANCOMYCIN [Concomitant]
     Active Substance: VANCOMYCIN

REACTIONS (11)
  - Cellulitis [Unknown]
  - Scrotum erosion [Unknown]
  - Groin abscess [Unknown]
  - Tooth abscess [Unknown]
  - Pain [Unknown]
  - Nerve injury [Unknown]
  - Anal incontinence [Unknown]
  - Fournier^s gangrene [Unknown]
  - Sepsis [Unknown]
  - Scar [Unknown]
  - Necrotising fasciitis [Unknown]

NARRATIVE: CASE EVENT DATE: 20161226
